FAERS Safety Report 10579914 (Version 3)
Quarter: 2014Q4

REPORT INFORMATION
  Report Type: Report from Study
  Country: IL (occurrence: IL)
  Receive Date: 20141112
  Receipt Date: 20141117
  Transmission Date: 20150529
  Serious: Yes (Death, Life-Threatening, Hospitalization, Other)
  Sender: FDA-Public Use
  Company Number: IL-GLAXOSMITHKLINE-B1017803A

PATIENT
  Age: 27 Year
  Sex: Male

DRUGS (1)
  1. ELTROMBOPAG [Suspect]
     Active Substance: ELTROMBOPAG
     Indication: THROMBOCYTOPENIA
     Dates: start: 20140305, end: 20140527

REACTIONS (2)
  - Psychotic disorder [Recovering/Resolving]
  - Leukaemia recurrent [Fatal]

NARRATIVE: CASE EVENT DATE: 20140717
